FAERS Safety Report 12212202 (Version 2)
Quarter: 2017Q3

REPORT INFORMATION
  Report Type: Spontaneous
  Country: US (occurrence: US)
  Receive Date: 20160325
  Receipt Date: 20170818
  Transmission Date: 20171127
  Serious: Yes (Death, Hospitalization, Other)
  Sender: FDA-Public Use
  Company Number: US-BIOGEN-2016BI00201832

PATIENT
  Age: 71 Year
  Sex: Female

DRUGS (1)
  1. TECFIDERA [Suspect]
     Active Substance: DIMETHYL FUMARATE
     Indication: MULTIPLE SCLEROSIS
     Route: 065
     Dates: start: 20141016

REACTIONS (5)
  - Coma [Unknown]
  - Lung cancer metastatic [Fatal]
  - Multiple sclerosis [Unknown]
  - Metastases to central nervous system [Fatal]
  - Gastroenteritis norovirus [Unknown]

NARRATIVE: CASE EVENT DATE: 201601
